FAERS Safety Report 5620904-1 (Version None)
Quarter: 2008Q1

REPORT INFORMATION
  Report Type: 
  Country: None (occurrence: None)
  Receive Date: 20080208
  Receipt Date: 20080125
  Transmission Date: 20080703
  Serious: Yes (Hospitalization, Other)
  Sender: FDA-Public Use
  Company Number: JP-ELI_LILLY_AND_COMPANY-JP200711005437

PATIENT
  Sex: Male
  Weight: 57.5 kg

DRUGS (9)
  1. PEMETREXED [Suspect]
     Indication: PLEURAL MESOTHELIOMA MALIGNANT
     Dosage: 820 MG, OTHER
     Route: 042
     Dates: start: 20070215, end: 20070215
  2. PEMETREXED [Suspect]
     Dosage: 550 MG, OTHER
     Route: 042
     Dates: start: 20070702
  3. CISPLATIN [Suspect]
     Indication: PLEURAL MESOTHELIOMA MALIGNANT
     Dosage: 82 MG, OTHER
     Route: 042
     Dates: start: 20070215, end: 20070215
  4. CISPLATIN [Suspect]
     Dosage: 5 MG, OTHER
     Route: 042
     Dates: start: 20070702
  5. PANVITAN [Concomitant]
     Dosage: 0.5 MG, DAILY (1/D)
     Route: 048
     Dates: start: 20070206, end: 20070927
  6. VITAMIN B-12 [Concomitant]
     Dosage: 1 MG, OTHER
     Route: 030
     Dates: start: 20070206, end: 20070206
  7. VITAMIN B-12 [Concomitant]
     Dosage: 1 MG, OTHER
     Route: 030
     Dates: start: 20070410, end: 20070410
  8. VITAMIN B-12 [Concomitant]
     Dosage: 1 MG, DAILY (1/D)
     Route: 030
     Dates: start: 20070622, end: 20070622
  9. VITAMIN B-12 [Concomitant]
     Dosage: 1 MG, DAILY (1/D)
     Route: 048
     Dates: start: 20070824, end: 20070824

REACTIONS (6)
  - ANAEMIA [None]
  - EPISTAXIS [None]
  - LYMPHOCYTE COUNT DECREASED [None]
  - NEUTROPHIL COUNT DECREASED [None]
  - THROMBOCYTOPENIA [None]
  - WHITE BLOOD CELL COUNT DECREASED [None]
